FAERS Safety Report 9941131 (Version 1)
Quarter: 2014Q1

REPORT INFORMATION
  Report Type: Report from Study
  Country: US (occurrence: US)
  Receive Date: 20140303
  Receipt Date: 20140303
  Transmission Date: 20141002
  Serious: No
  Sender: FDA-Public Use
  Company Number: US-ABBVIE-13P-163-1041551-00

PATIENT
  Age: 10 Year
  Sex: Male

DRUGS (5)
  1. HUMIRA [Suspect]
     Indication: UVEITIS
     Dates: start: 20121229
  2. METHOTREXATE [Concomitant]
     Indication: PRODUCT USED FOR UNKNOWN INDICATION
     Dosage: WEEKLY
  3. BROMFENAC [Concomitant]
     Indication: UVEITIS
     Dosage: 1 DROP INTO RIGHT EYE IN THE AM + PM
  4. COMBIGAN [Concomitant]
     Indication: UVEITIS
     Dosage: 1 DROP INTO RIGHT EYE IN THE AM + PM
  5. DUREZOL [Concomitant]
     Indication: UVEITIS
     Dosage: 1 DROP INTO RIGHT EYE IN THE AM + PM

REACTIONS (1)
  - Injection site pain [Recovered/Resolved]
